FAERS Safety Report 4998504-6 (Version None)
Quarter: 2006Q2

REPORT INFORMATION
  Report Type: 
  Country: None (occurrence: None)
  Receive Date: 20060508
  Receipt Date: 20060425
  Transmission Date: 20061013
  Serious: Yes (Other)
  Sender: FDA-Public Use
  Company Number: 224474

PATIENT

DRUGS (1)
  1. RITUXAN [Suspect]
     Indication: RHEUMATOID ARTHRITIS
     Dosage: 1000MG INTRAVENOUS
     Route: 042

REACTIONS (3)
  - ATRIAL FIBRILLATION [None]
  - DEEP VEIN THROMBOSIS [None]
  - INFUSION RELATED REACTION [None]
